FAERS Safety Report 10076186 (Version 1)
Quarter: 2014Q2

REPORT INFORMATION
  Report Type: Spontaneous
  Country: US (occurrence: None)
  Receive Date: 20140410
  Receipt Date: 20140410
  Transmission Date: 20141212
  Serious: Yes (Hospitalization)
  Sender: FDA-Public Use
  Company Number: UTC-046784

PATIENT
  Age: 60 Year
  Sex: Female
  Weight: 68.25 kg

DRUGS (1)
  1. TYVASO [Suspect]
     Indication: COR PULMONALE CHRONIC
     Route: 055
     Dates: start: 20130828

REACTIONS (3)
  - Flushing [None]
  - Feeling hot [None]
  - Peripheral swelling [None]
